FAERS Safety Report 6421589-7 (Version None)
Quarter: 2009Q4

REPORT INFORMATION
  Report Type: 
  Country: None (occurrence: None)
  Receive Date: 20091030
  Receipt Date: 20090424
  Transmission Date: 20100525
  Serious: Yes (Other)
  Sender: FDA-Public Use
  Company Number: PHHY2009GB18772

PATIENT
  Sex: Male

DRUGS (7)
  1. STALEVO 100 [Suspect]
     Indication: PARKINSON'S DISEASE
     Dosage: 100 MG, 3 IN 1 D
     Route: 048
     Dates: start: 20081201, end: 20090301
  2. ENALAPRIL [Concomitant]
     Dosage: 10 MG, UNK
     Route: 048
  3. ASPIRIN [Concomitant]
     Dosage: 300 MG, UNK
     Route: 048
  4. SIMVASTATIN [Concomitant]
     Dosage: 20 MG, UNK
     Route: 048
  5. TAMSULOSIN [Concomitant]
     Dosage: 400 MG, UNK
     Route: 048
  6. ACETAMINOPHEN [Concomitant]
     Dosage: 1 G, UNK
     Route: 048
  7. BECONASE [Concomitant]
     Dosage: UNK
     Route: 045

REACTIONS (2)
  - DIARRHOEA [None]
  - INTENTIONAL DRUG MISUSE [None]
